FAERS Safety Report 18477047 (Version 6)
Quarter: 2024Q4

REPORT INFORMATION
  Report Type: Report from Study
  Country: MX (occurrence: MX)
  Receive Date: 20201107
  Receipt Date: 20241209
  Transmission Date: 20250115
  Serious: Yes (Hospitalization, Disabling, Other)
  Sender: NOVARTIS
  Company Number: NVSC2020MX295341

PATIENT
  Sex: Female
  Weight: 62 kg

DRUGS (16)
  1. TASIGNA [Suspect]
     Active Substance: NILOTINIB
     Indication: Chronic myeloid leukaemia
     Dosage: 1 DOSAGE FORM, QD
     Route: 048
     Dates: start: 2004, end: 201412
  2. TASIGNA [Suspect]
     Active Substance: NILOTINIB
     Dosage: 2 DOSAGE FORM (200 MG), Q12H (AT 8, AT 20:00 HOURS AT NIGHT)
     Route: 048
     Dates: start: 2014
  3. TASIGNA [Suspect]
     Active Substance: NILOTINIB
     Dosage: 400 MG, BID (EVERY 12 HOURS)
     Route: 048
  4. IMATINIB [Suspect]
     Active Substance: IMATINIB
     Indication: Product used for unknown indication
     Dosage: UNK
     Route: 065
  5. CELECOXIB\LIDOCAINE\MENTHOL [Suspect]
     Active Substance: CELECOXIB\LIDOCAINE\MENTHOL
     Indication: Bone pain
     Dosage: 200 MG, BID (EVERY 12 HOURS)
     Route: 048
  6. CLONAZEPAM [Concomitant]
     Active Substance: CLONAZEPAM
     Indication: Anxiety
     Dosage: REDUCED TO 2 TABLETS
     Route: 048
  7. CLONAZEPAM [Concomitant]
     Active Substance: CLONAZEPAM
     Dosage: 2 DOSAGE FORM, QD
     Route: 048
     Dates: start: 2021
  8. RIVAROXABAN [Concomitant]
     Active Substance: RIVAROXABAN
     Indication: Product used for unknown indication
     Dosage: 10 MG, Q24H TABLETS
     Route: 048
  9. RIVAROXABAN [Concomitant]
     Active Substance: RIVAROXABAN
     Dosage: 1 DOSAGE FORM (10MG)
     Route: 048
     Dates: start: 202410, end: 202410
  10. CIPROFLOXACIN [Concomitant]
     Active Substance: CIPROFLOXACIN
     Indication: Product used for unknown indication
     Dosage: 200 MG, Q24H (CAPSULES)
     Route: 048
  11. CIPROFLOXACIN [Concomitant]
     Active Substance: CIPROFLOXACIN
     Dosage: 1 DOSAGE FORM (200MG)
     Route: 048
     Dates: start: 202410, end: 202410
  12. ACETAMINOPHEN [Concomitant]
     Active Substance: ACETAMINOPHEN
     Indication: Product used for unknown indication
     Dosage: UNK (AT 15:00 HOURS IN AFTERNOON) (SAME QUANTITIES)
     Route: 065
  13. FERROUS SULFATE [Concomitant]
     Active Substance: FERROUS SULFATE
     Indication: Product used for unknown indication
     Dosage: 24 MG, Q24H (1 TABLET)
     Route: 065
  14. FERROUS SULFATE [Concomitant]
     Active Substance: FERROUS SULFATE
     Dosage: 1 DOSAGE FORM (24MG)
     Route: 048
     Dates: start: 202408
  15. QUETIAPINE [Concomitant]
     Active Substance: QUETIAPINE
     Indication: Anxiety
     Dosage: 0.5 DOSAGE FORM, QD
     Route: 048
     Dates: start: 2021
  16. ESCITALOPRAM [Concomitant]
     Active Substance: ESCITALOPRAM OXALATE
     Indication: Anxiety
     Dosage: 0.5 DOSAGE FORM, QD
     Route: 048
     Dates: start: 2021

REACTIONS (21)
  - Fall [Recovered/Resolved]
  - Hip fracture [Recovered/Resolved]
  - Urinary tract disorder [Not Recovered/Not Resolved]
  - Dizziness [Not Recovered/Not Resolved]
  - Deafness unilateral [Not Recovered/Not Resolved]
  - Accident [Recovered/Resolved]
  - Hypothyroidism [Not Recovered/Not Resolved]
  - Hernia [Recovered/Resolved]
  - Hypotension [Recovering/Resolving]
  - Syncope [Recovered/Resolved]
  - Bone pain [Recovered/Resolved]
  - Spinal column injury [Recovered/Resolved]
  - Renal impairment [Not Recovered/Not Resolved]
  - Gastric ulcer [Recovered/Resolved]
  - Weight decreased [Recovered/Resolved]
  - Joint injury [Recovered/Resolved]
  - Cardiomegaly [Not Recovered/Not Resolved]
  - Blood pressure decreased [Recovered/Resolved]
  - Spinal pain [Recovered/Resolved]
  - Contusion [Recovered/Resolved]
  - Off label use [Unknown]

NARRATIVE: CASE EVENT DATE: 20040101
